FAERS Safety Report 24389253 (Version 1)
Quarter: 2024Q4

REPORT INFORMATION
  Report Type: Report from Study
  Country: US (occurrence: US)
  Receive Date: 20241003
  Receipt Date: 20241003
  Transmission Date: 20250114
  Serious: Yes (Hospitalization)
  Sender: ABBVIE
  Company Number: US-ABBVIE-5944356

PATIENT
  Sex: Male

DRUGS (1)
  1. UBRELVY [Suspect]
     Active Substance: UBROGEPANT
     Indication: Migraine
     Route: 048
     Dates: start: 20230201

REACTIONS (4)
  - Fall [Recovering/Resolving]
  - Migraine [Unknown]
  - Rib fracture [Unknown]
  - Scapula fracture [Unknown]

NARRATIVE: CASE EVENT DATE: 20240101
